FAERS Safety Report 8462901-7 (Version None)
Quarter: 2012Q2

REPORT INFORMATION
  Report Type: 
  Country: None (occurrence: None)
  Receive Date: 20120625
  Receipt Date: 20120620
  Transmission Date: 20120825
  Serious: Yes (Other)
  Sender: FDA-Public Use
  Company Number: US-PFIZER INC-2012149644

PATIENT

DRUGS (1)
  1. CHANTIX [Suspect]
     Dosage: UNK

REACTIONS (5)
  - IMPAIRED WORK ABILITY [None]
  - ANXIETY [None]
  - FEELING ABNORMAL [None]
  - DISTURBANCE IN ATTENTION [None]
  - STRESS [None]
